FAERS Safety Report 7560350-7 (Version None)
Quarter: 2011Q2

REPORT INFORMATION
  Report Type: 
  Country: None (occurrence: None)
  Receive Date: 20110621
  Receipt Date: 20110606
  Transmission Date: 20111010
  Serious: Yes (Life-Threatening, Hospitalization)
  Sender: FDA-Public Use
  Company Number: US-WATSON-2011-08014

PATIENT
  Sex: Male

DRUGS (5)
  1. MORPHINE [Concomitant]
     Indication: PAIN
     Dosage: 2 MG @16:48, 2 MG AT 20:00, 2 MG @21:00, 4 MG @22:33
     Route: 065
     Dates: start: 20090529
  2. FENTANYL-50 [Suspect]
     Indication: PAIN
     Dosage: 50 MCG Q 72 HOUR
     Route: 062
     Dates: start: 20090529
  3. PROMETHAZINE [Concomitant]
     Indication: NAUSEA
     Dosage: UNK
     Route: 065
     Dates: start: 20090530
  4. OXYCODONE HCL [Concomitant]
     Indication: PAIN
     Dosage: 10 ML AT 17:50
     Route: 065
     Dates: start: 20110529
  5. ROXICET [Concomitant]
     Indication: PAIN
     Dosage: UNK
     Route: 065
     Dates: start: 20090530

REACTIONS (10)
  - SWOLLEN TONGUE [None]
  - RESPIRATORY FAILURE [None]
  - ISCHAEMIC HEPATITIS [None]
  - PERIPHERAL COLDNESS [None]
  - CARDIAC ARREST [None]
  - UNRESPONSIVE TO STIMULI [None]
  - AMNESIA [None]
  - NERVOUS SYSTEM DISORDER [None]
  - RENAL FAILURE ACUTE [None]
  - OVERDOSE [None]
